FAERS Safety Report 6536525-2 (Version None)
Quarter: 2010Q1

REPORT INFORMATION
  Report Type: 
  Country: None (occurrence: None)
  Receive Date: 20100105
  Receipt Date: 20091221
  Transmission Date: 20100710
  Serious: Yes (Hospitalization)
  Sender: FDA-Public Use
  Company Number: 091223-0001249

PATIENT
  Age: 42 Year
  Sex: Male

DRUGS (5)
  1. ELSPAR [Suspect]
     Indication: ACUTE LYMPHOCYTIC LEUKAEMIA
     Dosage: ; QOD;
  2. VINCRISTINE [Concomitant]
  3. DAUNOMYCIN [Concomitant]
  4. PREDNISOLONE [Concomitant]
  5. METHOTREXATE [Concomitant]

REACTIONS (6)
  - BLOOD GLUCOSE INCREASED [None]
  - HEADACHE [None]
  - HYPERCHOLESTEROLAEMIA [None]
  - HYPERTRIGLYCERIDAEMIA [None]
  - PAIN [None]
  - PYREXIA [None]
